FAERS Safety Report 6258847-5 (Version None)
Quarter: 2009Q3

REPORT INFORMATION
  Report Type: 
  Country: None (occurrence: None)
  Receive Date: 20090707
  Receipt Date: 20090701
  Transmission Date: 20100115
  Serious: Yes (Hospitalization)
  Sender: FDA-Public Use
  Company Number: US-ASTRAZENECA-2009UW18373

PATIENT
  Age: 43 Year
  Sex: Female
  Weight: 91.2 kg

DRUGS (2)
  1. SEROQUEL XR [Suspect]
     Route: 048
     Dates: end: 20090601
  2. SEROQUEL XR [Suspect]
     Route: 048
     Dates: start: 20090607

REACTIONS (5)
  - BLOOD CREATINE PHOSPHOKINASE INCREASED [None]
  - BLOOD POTASSIUM INCREASED [None]
  - CONFUSIONAL STATE [None]
  - LETHARGY [None]
  - WHITE BLOOD CELL COUNT INCREASED [None]
